FAERS Safety Report 9016130 (Version 1)
Quarter: 2013Q1

REPORT INFORMATION
  Report Type: Spontaneous
  Country: IT (occurrence: IT)
  Receive Date: 20130116
  Receipt Date: 20130116
  Transmission Date: 20140127
  Serious: Yes (Hospitalization)
  Sender: FDA-Public Use
  Company Number: IT-ABBOTT-13P-083-1034200-00

PATIENT
  Age: 29 Year
  Sex: Female

DRUGS (2)
  1. BIAXIN [Suspect]
     Indication: PRODUCT USED FOR UNKNOWN INDICATION
     Route: 048
     Dates: start: 20121231, end: 20121231
  2. LAROXYL [Concomitant]
     Indication: MIGRAINE WITH AURA

REACTIONS (5)
  - Dyspnoea [Recovered/Resolved]
  - Throat tightness [Recovered/Resolved]
  - Pruritus generalised [Recovered/Resolved]
  - Vertigo [Recovered/Resolved]
  - Rash generalised [Recovered/Resolved]
